FAERS Safety Report 4861997-9 (Version None)
Quarter: 2005Q4

REPORT INFORMATION
  Report Type: 
  Country: None (occurrence: None)
  Receive Date: 20051129
  Receipt Date: 20050830
  Transmission Date: 20060501
  Serious: Yes (Hospitalization, Disabling)
  Sender: FDA-Public Use
  Company Number: WAES 0508USA04584

PATIENT
  Age: 79 Year
  Sex: Female
  Weight: 55.3388 kg

DRUGS (8)
  1. VYTORIN [Suspect]
     Dosage: 10-80 MG/PO
     Route: 048
     Dates: start: 20050601
  2. ACTOS [Concomitant]
  3. IMDUR [Concomitant]
  4. NEXIUM [Concomitant]
  5. ASPIRIN [Concomitant]
  6. BENAZEPRIL HYDROCHLORIDE [Concomitant]
  7. DILTIAZEM MALATE [Concomitant]
  8. METOPROLOL [Concomitant]

REACTIONS (4)
  - ALANINE AMINOTRANSFERASE INCREASED [None]
  - ASPARTATE AMINOTRANSFERASE INCREASED [None]
  - BLOOD CREATINE PHOSPHOKINASE INCREASED [None]
  - MYALGIA [None]
